FAERS Safety Report 5453007-X (Version None)
Quarter: 2007Q3

REPORT INFORMATION
  Report Type: 
  Country: None (occurrence: None)
  Receive Date: 20070914
  Receipt Date: 20070903
  Transmission Date: 20080115
  Serious: Yes (Other)
  Sender: FDA-Public Use
  Company Number: FR-PFIZER INC-2007073726

PATIENT
  Age: 40 Year
  Sex: Female

DRUGS (1)
  1. CHAMPIX [Suspect]
     Indication: SMOKING CESSATION THERAPY

REACTIONS (6)
  - CRYING [None]
  - CYCLOTHYMIC DISORDER [None]
  - DEPRESSION [None]
  - EMOTIONAL DISORDER [None]
  - HAEMORRHAGE [None]
  - LACRIMATION INCREASED [None]
